FAERS Safety Report 8127728-4 (Version None)
Quarter: 2012Q1

REPORT INFORMATION
  Report Type: 
  Country: None (occurrence: None)
  Receive Date: 20120210
  Receipt Date: 20120202
  Transmission Date: 20120608
  Serious: Yes (Disabling, Other)
  Sender: FDA-Public Use
  Company Number: JP-SANOFI-AVENTIS-2011SA072781

PATIENT
  Age: 79 Year
  Sex: Male

DRUGS (25)
  1. ZOSYN [Concomitant]
     Dosage: ZOSYN 4.5 G WAS GIVEN ALONG WITH NORMAL SALINE 100
     Dates: start: 20110914, end: 20110922
  2. ASPARA K [Suspect]
     Route: 048
     Dates: start: 20110916, end: 20110926
  3. SITAGLIPTIN PHOSPHATE [Concomitant]
     Indication: DIABETES MELLITUS
     Dosage: STRENGTH: 50
     Route: 048
     Dates: start: 20110916, end: 20111101
  4. CEFDINIR [Concomitant]
     Indication: URINARY TRACT INFECTION
     Route: 048
     Dates: start: 20111022, end: 20111101
  5. PLETAL [Concomitant]
     Route: 048
     Dates: start: 20111101, end: 20111104
  6. ALL OTHER THERAPEUTIC PRODUCTS [Concomitant]
     Dates: start: 20111104
  7. DABIGATRAN ETEXILATE [Concomitant]
     Dates: start: 20111104
  8. PLAVIX [Suspect]
     Indication: CARDIOVASCULAR DISORDER
     Dosage: STRENGTH: 75
     Route: 048
     Dates: start: 20110914, end: 20111031
  9. PLAVIX [Suspect]
     Indication: CEREBROVASCULAR ACCIDENT PROPHYLAXIS
     Dosage: STRENGTH: 75
     Route: 048
     Dates: start: 20110914, end: 20111031
  10. SITAGLIPTIN PHOSPHATE [Concomitant]
     Route: 048
     Dates: start: 20111101
  11. RISUMIC [Concomitant]
     Indication: ORTHOSTATIC HYPERTENSION
     Route: 048
     Dates: start: 20111001, end: 20111017
  12. HERBAL PREPARATION [Concomitant]
     Dosage: TUBE FEEDING
     Dates: start: 20111022, end: 20111101
  13. CEFAZOLIN SODIUM [Concomitant]
     Route: 048
     Dates: start: 20110930, end: 20111017
  14. BESACOLIN [Concomitant]
     Indication: URINARY RETENTION
     Dosage: STRENGTH: 5%
     Dates: start: 20111017, end: 20111101
  15. PAXIL [Concomitant]
     Indication: DEPRESSION
     Route: 048
     Dates: start: 20111024, end: 20111028
  16. ASPARA K [Suspect]
     Route: 048
     Dates: start: 20110926, end: 20110930
  17. CEFAZOLIN SODIUM [Concomitant]
     Indication: DIARRHOEA
     Route: 048
     Dates: start: 20110930, end: 20111017
  18. LAC B [Concomitant]
     Dosage: MICROGRANULES
     Route: 048
     Dates: start: 20111022, end: 20111101
  19. PAXIL [Concomitant]
     Route: 048
     Dates: start: 20111028, end: 20111101
  20. AMARYL [Suspect]
     Indication: DIABETES MELLITUS
     Route: 048
     Dates: start: 20110926, end: 20111101
  21. SULFAMETHOXAZOLE [Suspect]
     Indication: URINARY TRACT INFECTION
     Route: 048
     Dates: start: 20110926, end: 20111007
  22. ELECTROLYTE SOLUTIONS [Concomitant]
     Dosage: 500X2PACKS WERE GIVEN DOSE:2 UNIT(S)
     Route: 042
     Dates: start: 20110915, end: 20110916
  23. RISUMIC [Concomitant]
     Route: 048
     Dates: start: 20111001
  24. DOPS [Concomitant]
     Indication: ORTHOSTATIC HYPOTENSION
     Route: 048
  25. LANSOPRAZOLE [Concomitant]

REACTIONS (1)
  - HYPERKALAEMIA [None]
